FAERS Safety Report 24164567 (Version 1)
Quarter: 2024Q3

REPORT INFORMATION
  Report Type: Spontaneous
  Country: DE (occurrence: DE)
  Receive Date: 20240801
  Receipt Date: 20240801
  Transmission Date: 20241017
  Serious: Yes (Congenital Anomaly)
  Sender: ABBVIE
  Company Number: None

PATIENT
  Sex: Male

DRUGS (1)
  1. ESCITALOPRAM [Suspect]
     Active Substance: ESCITALOPRAM OXALATE
     Indication: Anxiety disorder
     Dosage: 15 [MG/D ]
     Route: 064
     Dates: start: 20230118, end: 20231023

REACTIONS (2)
  - Acrochordon [Unknown]
  - Foetal exposure during pregnancy [Unknown]

NARRATIVE: CASE EVENT DATE: 20231001
